FAERS Safety Report 4495571-3 (Version None)
Quarter: 2004Q4

REPORT INFORMATION
  Report Type: 
  Country: None (occurrence: None)
  Receive Date: 20041108
  Receipt Date: 20041020
  Transmission Date: 20050328
  Serious: Yes (Hospitalization)
  Sender: FDA-Public Use
  Company Number: JP-ROCHE-384236

PATIENT
  Age: 72 Year
  Sex: Female

DRUGS (2)
  1. ROCEPHIN [Suspect]
     Indication: POSTOPERATIVE INFECTION
     Route: 041
     Dates: start: 20041013, end: 20041013
  2. PERDIPINE [Concomitant]
     Route: 065
     Dates: start: 20041013, end: 20041013

REACTIONS (2)
  - ANAPHYLACTIC SHOCK [None]
  - VOMITING [None]
